FAERS Safety Report 15692279 (Version 1)
Quarter: 2018Q4

REPORT INFORMATION
  Report Type: Spontaneous
  Country: US (occurrence: US)
  Receive Date: 20181205
  Receipt Date: 20181205
  Transmission Date: 20190205
  Serious: No
  Sender: FDA-Public Use
  Company Number: US-TITAN PHARMACEUTICALS-2018TAN00001

PATIENT
  Sex: Female

DRUGS (1)
  1. PROBUPHINE [Suspect]
     Active Substance: BUPRENORPHINE HYDROCHLORIDE
     Dosage: UNK
     Dates: start: 20180315

REACTIONS (6)
  - Crying [Recovering/Resolving]
  - Psychological trauma [Recovering/Resolving]
  - Drug effect decreased [Unknown]
  - Adrenal disorder [Unknown]
  - Stress [Recovering/Resolving]
  - Emotional disorder [Recovering/Resolving]

NARRATIVE: CASE EVENT DATE: 2018
